FAERS Safety Report 16857334 (Version 1)
Quarter: 2019Q3

REPORT INFORMATION
  Report Type: Report from Study
  Country: CA (occurrence: CA)
  Receive Date: 20190926
  Receipt Date: 20190926
  Transmission Date: 20191005
  Serious: Yes (Hospitalization, Other)
  Sender: FDA-Public Use
  Company Number: CA-PFIZER INC-2019410391

PATIENT
  Age: 83 Year
  Sex: Male

DRUGS (32)
  1. ATROVENT [Interacting]
     Active Substance: IPRATROPIUM BROMIDE
     Dosage: UNK
     Route: 065
  2. SALBUTAMOL [Concomitant]
     Active Substance: ALBUTEROL
     Dosage: 100 UG, UNK
     Route: 065
  3. ESBRIET [Interacting]
     Active Substance: PIRFENIDONE
     Indication: IDIOPATHIC PULMONARY FIBROSIS
     Dosage: 267 MG, 3X/DAY
     Route: 048
  4. ESBRIET [Interacting]
     Active Substance: PIRFENIDONE
     Dosage: UNK
     Route: 048
  5. ESCITALOPRAM [Concomitant]
     Active Substance: ESCITALOPRAM OXALATE
     Dosage: 20 MG, UNK
     Route: 065
  6. PANTOPRAZOLE [Concomitant]
     Active Substance: PANTOPRAZOLE
     Dosage: 40 MG, UNK
     Route: 065
  7. DOXYCYCLINE HYCLATE. [Suspect]
     Active Substance: DOXYCYCLINE HYCLATE
     Dosage: UNK
     Route: 065
  8. ESBRIET [Interacting]
     Active Substance: PIRFENIDONE
     Dosage: 801 MG, 3X/DAY
     Route: 048
  9. FLOVENT [Interacting]
     Active Substance: FLUTICASONE PROPIONATE
     Dosage: UNK
     Route: 065
  10. HYDROMORPHONE [Concomitant]
     Active Substance: HYDROMORPHONE
     Dosage: 1 MG, UNK
     Route: 065
  11. VALSARTAN. [Concomitant]
     Active Substance: VALSARTAN
     Dosage: 40 MG, UNK
     Route: 065
  12. ELOCOM [Concomitant]
     Active Substance: MOMETASONE FUROATE
     Dosage: UNK
  13. PREDNISONE. [Concomitant]
     Active Substance: PREDNISONE
     Dosage: UNK
     Route: 065
  14. VENTOLIN [Interacting]
     Active Substance: ALBUTEROL SULFATE
     Dosage: UNK
     Route: 065
  15. ESCITALOPRAM [Concomitant]
     Active Substance: ESCITALOPRAM OXALATE
     Dosage: 20 MG, UNK
     Route: 065
  16. TOBRAMYCIN. [Concomitant]
     Active Substance: TOBRAMYCIN
     Dosage: 300 MG, UNK
     Route: 065
  17. VALSARTAN. [Concomitant]
     Active Substance: VALSARTAN
     Dosage: 40 MG, UNK
     Route: 065
  18. ESBRIET [Interacting]
     Active Substance: PIRFENIDONE
     Dosage: UNK
     Route: 048
  19. DOCUSATE SODIUM. [Concomitant]
     Active Substance: DOCUSATE SODIUM
     Dosage: UNK
     Route: 065
  20. PANTOLOC [PANTOPRAZOLE] [Concomitant]
     Active Substance: PANTOPRAZOLE SODIUM
     Dosage: UNK
  21. CIPRO [Interacting]
     Active Substance: CIPROFLOXACIN HYDROCHLORIDE
     Dosage: 750 MG, UNK
     Route: 065
  22. ADVAIR HFA [Concomitant]
     Active Substance: FLUTICASONE PROPIONATE\SALMETEROL XINAFOATE
     Dosage: UNK
     Route: 065
  23. CHLORPHENAMINE MALEATE [Concomitant]
     Active Substance: CHLORPHENIRAMINE MALEATE
     Dosage: UNK
  24. FUROSEMIDE. [Concomitant]
     Active Substance: FUROSEMIDE
     Dosage: UNK
  25. PANTOPRAZOLE [Concomitant]
     Active Substance: PANTOPRAZOLE
     Dosage: 40 MG, UNK
     Route: 065
  26. SALBUTAMOL [Concomitant]
     Active Substance: ALBUTEROL
     Dosage: 100 UG, UNK
     Route: 065
  27. TOBRAMYCIN. [Concomitant]
     Active Substance: TOBRAMYCIN
     Dosage: 300 MG, UNK
     Route: 065
  28. ZOFRAN [Concomitant]
     Active Substance: ONDANSETRON HYDROCHLORIDE
     Dosage: UNK
  29. MOXIFLOXACIN. [Interacting]
     Active Substance: MOXIFLOXACIN
     Dosage: UNK
     Route: 048
  30. HYDROMORPHONE [Concomitant]
     Active Substance: HYDROMORPHONE
     Dosage: 1 MG, UNK
     Route: 065
  31. SYNTHROID [Concomitant]
     Active Substance: LEVOTHYROXINE SODIUM
     Dosage: 0.075 MG, UNK
     Route: 065
  32. TOBRAMYCIN. [Concomitant]
     Active Substance: TOBRAMYCIN
     Dosage: 300 MG, UNK
     Route: 065

REACTIONS (27)
  - Aortic aneurysm [Not Recovered/Not Resolved]
  - Fatigue [Not Recovered/Not Resolved]
  - Feeling cold [Not Recovered/Not Resolved]
  - Hypersomnia [Not Recovered/Not Resolved]
  - Walking aid user [Not Recovered/Not Resolved]
  - Drug hypersensitivity [Not Recovered/Not Resolved]
  - Oxygen saturation decreased [Not Recovered/Not Resolved]
  - Peripheral swelling [Not Recovered/Not Resolved]
  - Stress [Not Recovered/Not Resolved]
  - Medication error [Unknown]
  - Drug interaction [Not Recovered/Not Resolved]
  - Chest injury [Not Recovered/Not Resolved]
  - Chills [Not Recovered/Not Resolved]
  - Constipation [Not Recovered/Not Resolved]
  - Hypoacusis [Not Recovered/Not Resolved]
  - Painful respiration [Not Recovered/Not Resolved]
  - Vomiting [Not Recovered/Not Resolved]
  - Decreased appetite [Not Recovered/Not Resolved]
  - Asthenia [Not Recovered/Not Resolved]
  - Dry skin [Not Recovered/Not Resolved]
  - Dyspnoea [Not Recovered/Not Resolved]
  - Hot flush [Not Recovered/Not Resolved]
  - Rash [Not Recovered/Not Resolved]
  - Intentional product use issue [Unknown]
  - Bronchitis [Not Recovered/Not Resolved]
  - Malaise [Not Recovered/Not Resolved]
  - Oral candidiasis [Not Recovered/Not Resolved]
